FAERS Safety Report 6373384-5 (Version None)
Quarter: 2009Q3

REPORT INFORMATION
  Report Type: 
  Country: None (occurrence: None)
  Receive Date: 20090924
  Receipt Date: 20090317
  Transmission Date: 20100115
  Serious: No
  Sender: FDA-Public Use
  Company Number: US-ASTRAZENECA-2009UW06999

PATIENT
  Age: 40 Year
  Sex: Male
  Weight: 112 kg

DRUGS (5)
  1. SEROQUEL [Suspect]
     Indication: DEPRESSION
     Dosage: 50 MG IN AM AND 100 MG IN PM
     Route: 048
     Dates: start: 20081101
  2. THYROID MEDICATION [Concomitant]
  3. PROPRANOLOL [Concomitant]
  4. TRAZODONE [Concomitant]
  5. ZOLOFT [Concomitant]

REACTIONS (3)
  - DRUG DOSE OMISSION [None]
  - INSOMNIA [None]
  - PALPITATIONS [None]
